FAERS Safety Report 13349531 (Version 1)
Quarter: 2017Q1

REPORT INFORMATION
  Report Type: Spontaneous
  Country: FR (occurrence: FR)
  Receive Date: 20170320
  Receipt Date: 20170320
  Transmission Date: 20170428
  Serious: Yes (Hospitalization)
  Sender: FDA-Public Use
  Company Number: FR-ROCHE-1906536

PATIENT
  Age: 13 Year
  Sex: Male

DRUGS (2)
  1. INEXIUM [Suspect]
     Active Substance: ESOMEPRAZOLE
     Indication: PROPHYLAXIS
     Dosage: ENTERIC-COATED TABLET
     Route: 048
     Dates: start: 2004, end: 201702
  2. VALIUM [Suspect]
     Active Substance: DIAZEPAM
     Indication: AGITATION
     Route: 048
     Dates: start: 2015

REACTIONS (2)
  - Hypocalcaemia [Recovered/Resolved]
  - Rickets [Not Recovered/Not Resolved]

NARRATIVE: CASE EVENT DATE: 2016
